FAERS Safety Report 25246207 (Version 1)
Quarter: 2025Q2

REPORT INFORMATION
  Report Type: Spontaneous
  Country: AU (occurrence: AU)
  Receive Date: 20250428
  Receipt Date: 20250428
  Transmission Date: 20250717
  Serious: Yes (Hospitalization)
  Sender: ELI LILLY AND COMPANY
  Company Number: AU-ELI_LILLY_AND_COMPANY-AU202504016379

PATIENT
  Age: 35 Year
  Sex: Female

DRUGS (2)
  1. MOUNJARO [Suspect]
     Active Substance: TIRZEPATIDE
     Indication: Weight control
     Dosage: 2.5 MG, WEEKLY (1/W)
     Route: 058
     Dates: start: 202412
  2. MOUNJARO [Suspect]
     Active Substance: TIRZEPATIDE
     Indication: Type 2 diabetes mellitus
     Dosage: 5 MG, WEEKLY (1/W)
     Route: 058

REACTIONS (14)
  - Hypophosphataemia [Unknown]
  - Vomiting projectile [Unknown]
  - Chills [Unknown]
  - Hypokalaemia [Unknown]
  - Starvation ketoacidosis [Unknown]
  - Dyspnoea [Unknown]
  - Electrocardiogram QT prolonged [Recovered/Resolved]
  - Hypophagia [Unknown]
  - Prescribed overdose [Unknown]
  - Diarrhoea [Unknown]
  - Nausea [Unknown]
  - Dehydration [Unknown]
  - Epigastric discomfort [Unknown]
  - Vomiting [Recovered/Resolved]

NARRATIVE: CASE EVENT DATE: 20241201
